FAERS Safety Report 6142376-3 (Version None)
Quarter: 2009Q2

REPORT INFORMATION
  Report Type: 
  Country: None (occurrence: None)
  Receive Date: 20090403
  Receipt Date: 20071130
  Transmission Date: 20091009
  Serious: Yes (Hospitalization, Other)
  Sender: FDA-Public Use
  Company Number: US-ASTRAZENECA-2007UW21659

PATIENT
  Age: 20485 Day
  Sex: Female
  Weight: 116.6 kg

DRUGS (12)
  1. SEROQUEL [Suspect]
     Indication: SCHIZOAFFECTIVE DISORDER
     Dosage: 25 MG TO 800 MG
     Route: 048
     Dates: start: 19980402
  2. THORAZINE SPANSULE [Concomitant]
  3. STELAZINE [Concomitant]
  4. ARTANE [Concomitant]
  5. ABILIFY [Concomitant]
  6. COGENTIN [Concomitant]
  7. TEGRETOL [Concomitant]
  8. VALIUM [Concomitant]
  9. NORVASC [Concomitant]
  10. TYLENOL [Concomitant]
  11. HUMULIN R [Concomitant]
  12. METFORMIN HCL [Concomitant]

REACTIONS (23)
  - ACCIDENTAL OVERDOSE [None]
  - ANAL FISSURE [None]
  - ANXIETY [None]
  - ARTHRALGIA [None]
  - ASTHMA [None]
  - BACK PAIN [None]
  - BRONCHITIS [None]
  - DIABETES MELLITUS [None]
  - DIABETIC KETOACIDOSIS [None]
  - HAEMORRHOIDS [None]
  - JOINT SPRAIN [None]
  - MANIA [None]
  - MOUTH ULCERATION [None]
  - NECK PAIN [None]
  - PALPITATIONS [None]
  - PRESSURE OF SPEECH [None]
  - PSYCHOTIC DISORDER [None]
  - RECTAL HAEMORRHAGE [None]
  - SKIN CANDIDA [None]
  - SKIN NODULE [None]
  - TARDIVE DYSKINESIA [None]
  - URTICARIA [None]
  - VOMITING [None]
